FAERS Safety Report 5651791-3 (Version None)
Quarter: 2008Q1

REPORT INFORMATION
  Report Type: 
  Country: None (occurrence: None)
  Receive Date: 20080305
  Receipt Date: 20080222
  Transmission Date: 20080703
  Serious: Yes (Other)
  Sender: FDA-Public Use
  Company Number: FR-PFIZER INC-2008012072

PATIENT
  Sex: Male
  Weight: 47 kg

DRUGS (11)
  1. VFEND [Suspect]
     Indication: BRONCHOPULMONARY ASPERGILLOSIS
     Dosage: DAILY DOSE:400MG
  2. VFEND [Suspect]
     Dosage: DAILY DOSE:300MG
  3. VFEND [Suspect]
     Dosage: DAILY DOSE:200MG
  4. TRANDOLAPRIL [Concomitant]
     Route: 048
  5. DIFFU K [Concomitant]
     Route: 048
  6. ALDACTONE [Concomitant]
     Route: 048
  7. DIGOXIN [Concomitant]
     Route: 048
  8. SEREVENT [Concomitant]
     Route: 048
  9. CORTANCYL [Concomitant]
     Dosage: DAILY DOSE:15MG
     Route: 048
  10. INIPOMP [Concomitant]
     Route: 048
  11. ACTONEL [Concomitant]
     Dosage: FREQ:ONE PER WEEK
     Route: 048

REACTIONS (3)
  - ASPARTATE AMINOTRANSFERASE INCREASED [None]
  - CELL DEATH [None]
  - GAMMA-GLUTAMYLTRANSFERASE INCREASED [None]
